FAERS Safety Report 6030018-7 (Version None)
Quarter: 2008Q4

REPORT INFORMATION
  Report Type: 
  Country: None (occurrence: None)
  Receive Date: 20081222
  Receipt Date: 20081215
  Transmission Date: 20090506
  Serious: No
  Sender: FDA-Public Use
  Company Number: US-WYE-H06142908

PATIENT
  Age: 61 Year
  Sex: Male
  Weight: 72.64 kg

DRUGS (2)
  1. PRISTIQ [Suspect]
     Indication: DEPRESSION
     Dosage: 50 MG 1X PER 1 DAY, ORAL
     Route: 048
     Dates: start: 20080901, end: 20080922
  2. KLONOPIN [Concomitant]

REACTIONS (3)
  - RASH MACULO-PAPULAR [None]
  - URINARY HESITATION [None]
  - URINE FLOW DECREASED [None]
